FAERS Safety Report 24274559 (Version 15)
Quarter: 2025Q3

REPORT INFORMATION
  Report Type: Spontaneous
  Country: US (occurrence: US)
  Receive Date: 20240902
  Receipt Date: 20250822
  Transmission Date: 20251020
  Serious: Yes (Other)
  Sender: PFIZER
  Company Number: US-PFIZER INC-PV202200081937

PATIENT
  Age: 65 Year
  Sex: Female
  Weight: 72.12 kg

DRUGS (16)
  1. PREMARIN [Suspect]
     Active Substance: ESTROGENS, CONJUGATED
     Indication: Atrophic vulvovaginitis
     Dosage: INSERT 0.5 APPLICATORFUL
     Route: 067
     Dates: start: 1996
  2. PREMARIN [Suspect]
     Active Substance: ESTROGENS, CONJUGATED
     Indication: Female genital tract fistula
     Dosage: 2X/DAY
  3. PREMARIN [Suspect]
     Active Substance: ESTROGENS, CONJUGATED
     Indication: Vulvovaginal dryness
     Dosage: ALTERNATE DAY
  4. PREMARIN [Suspect]
     Active Substance: ESTROGENS, CONJUGATED
  5. PREMARIN [Suspect]
     Active Substance: ESTROGENS, CONJUGATED
     Dosage: AT BEDTIME 1 GM VAGINALLY EVERY OTHER DAY
     Route: 067
  6. PREMARIN [Suspect]
     Active Substance: ESTROGENS, CONJUGATED
  7. CAPECITABINE [Concomitant]
     Active Substance: CAPECITABINE
  8. CHOLECALCIFEROL [Concomitant]
     Active Substance: CHOLECALCIFEROL
     Dosage: 125 MCG (5,000 INTL UNITS) ORAL CAPSULE, ORALLY, DAILY
     Route: 048
  9. VITAMIN D3 [Concomitant]
     Active Substance: CHOLECALCIFEROL
     Dosage: 125 MCG (5,000 INTL UNITS) ORAL CAPSULE, ORALLY, DAILY
     Route: 048
  10. ESTRADIOL [Concomitant]
     Active Substance: ESTRADIOL
     Dosage: 1 MG ORAL TABLET 1 MG = 1 TABLET, ORALLY, DAILY
     Route: 048
  11. FERROUS SULFATE [Concomitant]
     Active Substance: FERROUS SULFATE
     Route: 048
  12. FISH OIL [Concomitant]
     Active Substance: FISH OIL
     Dosage: 1,200 MG, ORALLY, DAILY
     Route: 048
  13. LAMOTRIGINE [Concomitant]
     Active Substance: LAMOTRIGINE
     Dosage: 100 MG ORAL TABLET 100 MG, ORALLY, AT BEDTIME
     Route: 048
  14. LEVOTHYROXINE [Concomitant]
     Active Substance: LEVOTHYROXINE
     Dosage: 50 MCG (0.05 MG) ORAL TABLET 50 MCG, ORALLY, DAILY
     Route: 048
  15. TRAZODONE [Concomitant]
     Active Substance: TRAZODONE HYDROCHLORIDE
     Dosage: 100 MG ORAL TABLET 100 MG, ORALLY, AT BEDTIME
     Route: 048
  16. VITAMIN C [Concomitant]
     Active Substance: ASCORBIC ACID
     Dosage: 500 MG, ORALLY, DAILY
     Route: 048

REACTIONS (3)
  - Colon cancer [Unknown]
  - Off label use [Unknown]
  - Product prescribing error [Unknown]

NARRATIVE: CASE EVENT DATE: 20240301
